FAERS Safety Report 22048033 (Version 1)
Quarter: 2023Q1

REPORT INFORMATION
  Report Type: Spontaneous
  Country: IN (occurrence: IN)
  Receive Date: 20230301
  Receipt Date: 20230301
  Transmission Date: 20230418
  Serious: Yes (Hospitalization, Other)
  Sender: FDA-Public Use
  Company Number: IN-STERISCIENCE B.V.-2023-ST-000953

PATIENT
  Age: 25 Year
  Sex: Female

DRUGS (2)
  1. BUPIVACAINE [Suspect]
     Active Substance: BUPIVACAINE
     Indication: Spinal anaesthesia
     Dosage: 2 MILLILITER HYPERBARIC BUPIVACAINE
     Route: 065
  2. FENTANYL [Concomitant]
     Active Substance: FENTANYL
     Indication: Product used for unknown indication
     Dosage: 25 MICROGRAM
     Route: 065

REACTIONS (8)
  - Blindness cortical [None]
  - Urinary retention [None]
  - Sensorimotor disorder [Unknown]
  - Visual evoked potentials abnormal [None]
  - Nervous system disorder [None]
  - Hypometabolism [None]
  - Toxicity to various agents [Unknown]
  - Maternal exposure during delivery [Unknown]
